FAERS Safety Report 23521782 (Version 1)
Quarter: 2024Q1

REPORT INFORMATION
  Report Type: Spontaneous
  Country: DE (occurrence: DE)
  Receive Date: 20240214
  Receipt Date: 20240214
  Transmission Date: 20240410
  Serious: Yes (Other)
  Sender: FDA-Public Use
  Company Number: DE-Harrow Eye-2153128

PATIENT
  Sex: Female

DRUGS (2)
  1. VERKAZIA [Suspect]
     Active Substance: CYCLOSPORINE
     Route: 047
  2. LUBRICATING EYE DROPS [Concomitant]
     Active Substance: CARBOXYMETHYLCELLULOSE SODIUM

REACTIONS (2)
  - Injury corneal [Not Recovered/Not Resolved]
  - Product administration error [Unknown]
